FAERS Safety Report 8862703 (Version 2)
Quarter: 2012Q4

REPORT INFORMATION
  Report Type: Report from Study
  Country: US (occurrence: US)
  Receive Date: 20121026
  Receipt Date: 20121219
  Transmission Date: 20130627
  Serious: Yes (Hospitalization)
  Sender: FDA-Public Use
  Company Number: US-PURDUE-USA-2012-0094764

PATIENT
  Sex: Male
  Weight: 95.24 kg

DRUGS (2)
  1. OXYCONTIN (NDA 22-272) [Suspect]
     Indication: PRODUCT USED FOR UNKNOWN INDICATION
     Dosage: 30 mg, tid
     Route: 048
  2. ADDERALL [Concomitant]
     Indication: PAIN
     Route: 065

REACTIONS (4)
  - Intestinal obstruction [Recovered/Resolved]
  - Stress [Not Recovered/Not Resolved]
  - Aphagia [Unknown]
  - Crohn^s disease [Unknown]
